FAERS Safety Report 16815584 (Version 1)
Quarter: 2019Q4

REPORT INFORMATION
  Report Type: Spontaneous
  Country: US (occurrence: US)
  Receive Date: 20190916
  Receipt Date: 20190916
  Transmission Date: 20200122
  Serious: Yes (Death)
  Sender: FDA-Public Use
  Company Number: None

PATIENT
  Age: 45 Year
  Sex: Female

DRUGS (2)
  1. BUPRENORPHINE AND NALOXONE [Suspect]
     Active Substance: BUPRENORPHINE HYDROCHLORIDE\NALOXONE HYDROCHLORIDE
     Indication: WITHDRAWAL SYNDROME
     Dosage: ?          QUANTITY:1 FILM;OTHER FREQUENCY:4 TO 48 HOURS;?
     Route: 060
     Dates: start: 20190821, end: 20190823
  2. BUPRENORPHINE AND NALOXONE [Suspect]
     Active Substance: BUPRENORPHINE HYDROCHLORIDE\NALOXONE HYDROCHLORIDE
     Indication: PAIN
     Dosage: ?          QUANTITY:1 FILM;OTHER FREQUENCY:4 TO 48 HOURS;?
     Route: 060
     Dates: start: 20190821, end: 20190823

REACTIONS (1)
  - Cardiac arrest [None]

NARRATIVE: CASE EVENT DATE: 20190823
